FAERS Safety Report 9057843 (Version 1)
Quarter: 2013Q1

REPORT INFORMATION
  Report Type: Spontaneous
  Country: US (occurrence: None)
  Receive Date: 20130204
  Receipt Date: 20130204
  Transmission Date: 20140127
  Serious: Yes (Disabling, Other)
  Sender: FDA-Public Use
  Company Number: None

PATIENT
  Age: 52 Year
  Sex: Female
  Weight: 74.84 kg

DRUGS (4)
  1. HUMALOG [Suspect]
     Indication: DIABETES MELLITUS
     Dosage: 15 UNITS 3 X DAILY SQ
     Dates: start: 19970101, end: 20121229
  2. NOVALOG [Concomitant]
  3. HUMULIN R [Concomitant]
  4. APIDRA [Concomitant]

REACTIONS (3)
  - Heart rate increased [None]
  - Tremor [None]
  - Impaired work ability [None]
